FAERS Safety Report 12618361 (Version 2)
Quarter: 2016Q3

REPORT INFORMATION
  Report Type: Spontaneous
  Country: US (occurrence: US)
  Receive Date: 20160803
  Receipt Date: 20160816
  Transmission Date: 20161109
  Serious: Yes (Other)
  Sender: FDA-Public Use
  Company Number: US-PFIZER INC-2016354691

PATIENT
  Age: 60 Year
  Sex: Male

DRUGS (1)
  1. SUTENT [Suspect]
     Active Substance: SUNITINIB MALATE
     Indication: METASTATIC RENAL CELL CARCINOMA
     Dosage: 50 MG, CYCLIC (3 WEEKS ON,2 WEEKS OFF)
     Route: 048
     Dates: start: 201606, end: 20160725

REACTIONS (5)
  - Thrombocytopenia [Unknown]
  - Asthenia [Unknown]
  - Anaemia [Unknown]
  - Hypocalcaemia [Unknown]
  - Pyrexia [Unknown]

NARRATIVE: CASE EVENT DATE: 201606
